FAERS Safety Report 8363041-8 (Version None)
Quarter: 2012Q2

REPORT INFORMATION
  Report Type: 
  Country: None (occurrence: None)
  Receive Date: 20120516
  Receipt Date: 20120508
  Transmission Date: 20120825
  Serious: Yes (Hospitalization, Other)
  Sender: FDA-Public Use
  Company Number: US-ASTELLAS-2012US003542

PATIENT
  Sex: Female
  Weight: 54 kg

DRUGS (1)
  1. PROGRAF [Suspect]
     Indication: RENAL TRANSPLANT
     Dosage: 3 MG, BID
     Route: 048
     Dates: start: 20050531

REACTIONS (8)
  - SYSTEMIC LUPUS ERYTHEMATOSUS [None]
  - CARDIAC FAILURE CONGESTIVE [None]
  - KIDNEY TRANSPLANT REJECTION [None]
  - PANCREATITIS [None]
  - ANAEMIA [None]
  - DRUG INEFFECTIVE [None]
  - HYPERTENSION [None]
  - CHOLELITHIASIS [None]
